FAERS Safety Report 6982669-0 (Version None)
Quarter: 2010Q3

REPORT INFORMATION
  Report Type: 
  Country: None (occurrence: None)
  Receive Date: 20100909
  Receipt Date: 20100825
  Transmission Date: 20110219
  Serious: Yes (Hospitalization, Other)
  Sender: FDA-Public Use
  Company Number: 2010AP001707

PATIENT
  Age: 52 Year
  Sex: Female

DRUGS (8)
  1. DILTIAZEM HCL [Suspect]
     Dosage: 180 MG, QD, PO, 180 MG,
  2. RITONAVIR [Suspect]
     Dosage: 2 TAB; BID;
  3. LOPINAVIR [Suspect]
     Dosage: 2 TAB; BID
  4. CLONIDINE [Suspect]
     Dosage: 0.2 MG, TID, 0,2 MG, QD, PO, 01 MG,
     Route: 048
  5. METOPROLOL [Suspect]
     Dosage: 200 MG, BID, 100 MG, BID, 200 MG;
  6. LABETALOL HCL [Suspect]
     Dosage: 20 MG, QD; IV
     Route: 042
  7. HYDRALAZINE HCL [Suspect]
     Dosage: 10 MG, TID; 10 MG, QD; 10 MG, TID; IV, 10 MG;
     Route: 042
  8. NIFEDIPINE [Suspect]
     Dosage: 60 MG; PO
     Route: 048

REACTIONS (8)
  - CARDIAC MURMUR [None]
  - CONFUSIONAL STATE [None]
  - DEPRESSED LEVEL OF CONSCIOUSNESS [None]
  - DRUG INTERACTION [None]
  - ELECTROCARDIOGRAM PR PROLONGATION [None]
  - HYPERTENSIVE CRISIS [None]
  - HYPOTENSION [None]
  - OVERDOSE [None]
